FAERS Safety Report 6287929-7 (Version None)
Quarter: 2009Q3

REPORT INFORMATION
  Report Type: 
  Country: None (occurrence: None)
  Receive Date: 20090729
  Receipt Date: 20090722
  Transmission Date: 20100115
  Serious: Yes (Other)
  Sender: FDA-Public Use
  Company Number: GR-BRISTOL-MYERS SQUIBB COMPANY-14710594

PATIENT
  Age: 3 Year
  Sex: Male

DRUGS (1)
  1. PROCEF [Suspect]
     Indication: TONSILLITIS STREPTOCOCCAL
     Route: 048

REACTIONS (1)
  - CELLULITIS ORBITAL [None]
